FAERS Safety Report 7941211-8 (Version None)
Quarter: 2011Q4

REPORT INFORMATION
  Report Type: 
  Country: None (occurrence: None)
  Receive Date: 20111128
  Receipt Date: 20111116
  Transmission Date: 20120403
  Serious: Yes (Other)
  Sender: FDA-Public Use
  Company Number: US-JNJFOC-20111107149

PATIENT
  Age: 41 Year
  Sex: Male

DRUGS (2)
  1. RISPERDAL CONSTA [Suspect]
     Route: 030
  2. RISPERDAL CONSTA [Suspect]
     Indication: SCHIZOAFFECTIVE DISORDER BIPOLAR TYPE
     Route: 030
     Dates: start: 20100101

REACTIONS (6)
  - HYPOAESTHESIA [None]
  - CHEST PAIN [None]
  - THERAPY CESSATION [None]
  - FEELING ABNORMAL [None]
  - ANHEDONIA [None]
  - TOXICITY TO VARIOUS AGENTS [None]
